FAERS Safety Report 4282134-8 (Version None)
Quarter: 2004Q1

REPORT INFORMATION
  Report Type: 
  Country: None (occurrence: None)
  Receive Date: 20040130
  Receipt Date: 20031112
  Transmission Date: 20041129
  Serious: No
  Sender: FDA-Public Use
  Company Number: US-BRISTOL-MYERS SQUIBB COMPANY-12433983

PATIENT
  Age: 66 Year
  Sex: Female
  Weight: 91 kg

DRUGS (5)
  1. GLUCOVANCE [Suspect]
     Indication: DIABETES MELLITUS
     Dosage: DURATION OF THERAPY ^OVER A MONTH^
     Route: 048
  2. TRAZODONE HCL [Suspect]
  3. CELEBREX [Suspect]
  4. PAXIL [Suspect]
  5. TRANXENE [Suspect]

REACTIONS (1)
  - DIARRHOEA [None]
